FAERS Safety Report 7659662-8 (Version None)
Quarter: 2011Q3

REPORT INFORMATION
  Report Type: 
  Country: None (occurrence: None)
  Receive Date: 20110805
  Receipt Date: 20110803
  Transmission Date: 20111222
  Serious: Yes (Life-Threatening)
  Sender: FDA-Public Use
  Company Number: CN-ASTRAZENECA-2011SE45607

PATIENT
  Age: 45 Year
  Sex: Male

DRUGS (2)
  1. LIDOCAINE [Suspect]
     Indication: LOCAL ANAESTHESIA
  2. LIDOCAINE [Suspect]
     Indication: HAEMORRHOID OPERATION

REACTIONS (4)
  - ACUTE MYOCARDIAL INFARCTION [None]
  - CARDIOGENIC SHOCK [None]
  - HYPOKALAEMIA [None]
  - ACUTE CORONARY SYNDROME [None]
